FAERS Safety Report 13076238 (Version 2)
Quarter: 2017Q1

REPORT INFORMATION
  Report Type: Spontaneous
  Country: AZ (occurrence: AZ)
  Receive Date: 20161230
  Receipt Date: 20170321
  Transmission Date: 20170428
  Serious: Yes (Other)
  Sender: FDA-Public Use
  Company Number: AZ-NOVOPROD-499399

PATIENT
  Age: 30 Year
  Sex: Female

DRUGS (2)
  1. LEVEMIR [Suspect]
     Active Substance: INSULIN DETEMIR
     Indication: GESTATIONAL DIABETES
     Dosage: 12 U, QD
     Route: 058
     Dates: start: 20160610
  2. NOVORAPID [Suspect]
     Active Substance: INSULIN ASPART
     Indication: GESTATIONAL DIABETES
     Dosage: 30 U, QD (8 - 10 - 12)
     Route: 058
     Dates: start: 20160610

REACTIONS (2)
  - Exposure during pregnancy [Recovered/Resolved]
  - Respiratory tract infection [Recovered/Resolved]

NARRATIVE: CASE EVENT DATE: 20160610
